FAERS Safety Report 14169956 (Version 4)
Quarter: 2018Q1

REPORT INFORMATION
  Report Type: Spontaneous
  Country: US (occurrence: US)
  Receive Date: 20171108
  Receipt Date: 20180116
  Transmission Date: 20180508
  Serious: No
  Sender: FDA-Public Use
  Company Number: US-PFIZER INC-2017479240

PATIENT
  Age: 70 Year
  Sex: Female
  Weight: 64 kg

DRUGS (17)
  1. CARBIDOPA-LEVODOPA [Concomitant]
     Active Substance: CARBIDOPA\LEVODOPA
     Indication: PARKINSON^S DISEASE
     Dosage: CARBIDOPA 25MG/LEVODOPA 110MG), TABLET, ONE AND A HALF TABLET FIVE TIMES A DAY
  2. SINEMET [Concomitant]
     Active Substance: CARBIDOPA\LEVODOPA
     Dosage: UNK UNK, 4X/DAY [CARBIDOPA 25MG, LEVODOPA 100MG]
     Dates: start: 20131021
  3. ADVIL LIQUI GELS [Concomitant]
     Dosage: 200 MG, UNK
     Dates: start: 20160617
  4. OXYTROL FOR WOMEN [Concomitant]
     Active Substance: OXYBUTYNIN
     Dosage: UNK UNK, AS NEEDED(3.9 MG/24 HOUR )
     Dates: start: 20160621
  5. MIRALAX [Concomitant]
     Active Substance: POLYETHYLENE GLYCOL 3350
     Dosage: 17 G, DAILY
     Route: 048
  6. BUPROPION XL [Concomitant]
     Active Substance: BUPROPION
     Indication: DEPRESSION
     Dosage: 300 MG, 1X/DAY
  7. LYRICA [Suspect]
     Active Substance: PREGABALIN
     Indication: NEURALGIA
     Dosage: 150 MG, DAILY (ONE IN THE MORNING AND TWO AT NIGHT)
     Route: 048
  8. VITAMIN D3 [Concomitant]
     Active Substance: CHOLECALCIFEROL
     Dosage: 5000 IU, UNK
     Dates: start: 20150121
  9. ZOFRAN [Concomitant]
     Active Substance: ONDANSETRON HYDROCHLORIDE
     Indication: NAUSEA
     Dosage: 4 MG, AS NEEDED (TAKE 1-2 TABS EVERY 12 HOURS AS NEEDED)
     Route: 048
     Dates: start: 20160930
  10. ANTIVERT [Concomitant]
     Active Substance: MECLIZINE HYDROCHLORIDE
     Dosage: 25 MG, AS NEEDED(TAKE 1 TABLET (25 MG TOTAL) BY MOUTH 3 (THREE) TIMES DAILY AS NEEDED)
     Route: 048
     Dates: start: 20130413
  11. LIPITOR [Concomitant]
     Active Substance: ATORVASTATIN CALCIUM
     Dosage: 20 MG, 1X/DAY (1 TABLET (20 MG TOTAL) BY MOUTH NIGHTLY)
     Route: 048
     Dates: start: 20171003
  12. WELLBUTRIN XL [Concomitant]
     Active Substance: BUPROPION HYDROCHLORIDE
     Dosage: 150 MG, 1X/DAY (1 TABLET (150 MG) BY MOUTH EVERY MORNING)
     Route: 048
     Dates: start: 20171017
  13. LYRICA [Suspect]
     Active Substance: PREGABALIN
     Indication: PAIN
     Dosage: UNK
     Dates: start: 201701
  14. WELLBUTRIN XL [Concomitant]
     Active Substance: BUPROPION HYDROCHLORIDE
     Dosage: 150 MG, 1X/DAY (1 TABLET (300 MG TOTAL) BY MOUTH EVERY MORNING)
     Route: 048
     Dates: start: 20171003
  15. ZOFRAN [Concomitant]
     Active Substance: ONDANSETRON HYDROCHLORIDE
     Indication: VOMITING
  16. CHRONULAC [Concomitant]
     Active Substance: LACTULOSE
     Indication: LAXATIVE SUPPORTIVE CARE
     Dosage: UNK (TAKE 15-30 ML 1-2 TIMES DAILY, MAY ADJUST DOSE EVERY DAY OR TWO TO PRODUCE 2-3)
     Dates: start: 20160610
  17. LINZESS [Concomitant]
     Active Substance: LINACLOTIDE
     Dosage: 145 UG, AS NEEDED
     Route: 048

REACTIONS (2)
  - Pain [Not Recovered/Not Resolved]
  - Gait inability [Not Recovered/Not Resolved]
